FAERS Safety Report 4942781-4 (Version None)
Quarter: 2006Q1

REPORT INFORMATION
  Report Type: 
  Country: None (occurrence: None)
  Receive Date: 20060314
  Receipt Date: 20060303
  Transmission Date: 20060701
  Serious: Yes (Hospitalization)
  Sender: FDA-Public Use
  Company Number: US-JNJFOC-20060301279

PATIENT
  Sex: Male

DRUGS (8)
  1. REMICADE [Suspect]
     Indication: CROHN'S DISEASE
     Route: 042
  2. CLARITIN [Concomitant]
  3. 6-MP [Concomitant]
  4. PREVACID [Concomitant]
  5. CELEXA [Concomitant]
  6. FLOVENT [Concomitant]
  7. DEPAKOTE [Concomitant]
  8. ALBUTEROL [Concomitant]

REACTIONS (3)
  - NOCARDIOSIS [None]
  - SUBCUTANEOUS ABSCESS [None]
  - VARICELLA [None]
